FAERS Safety Report 4773064-3 (Version None)
Quarter: 2005Q3

REPORT INFORMATION
  Report Type: 
  Country: None (occurrence: None)
  Receive Date: 20050916
  Receipt Date: 20050906
  Transmission Date: 20060218
  Serious: Yes (Hospitalization)
  Sender: FDA-Public Use
  Company Number: 2005AL003458

PATIENT
  Age: 79 Year
  Sex: Male

DRUGS (5)
  1. SERAX [Suspect]
     Dosage: 30 MG; QD; PO
     Route: 048
     Dates: end: 20050618
  2. KADIAN [Suspect]
     Dosage: QD; PO
     Route: 048
  3. TETRAZEPAM ({NULL}) [Suspect]
     Dosage: QD;PO
     Route: 048
     Dates: end: 20050607
  4. RISPERDAL [Suspect]
     Dosage: QD;PO
     Route: 048
     Dates: end: 20050618
  5. CITALOPRAM HYDROCHLORIDE ({NULL}) [Suspect]
     Dosage: 0.5 ML;QD
     Dates: end: 20050618

REACTIONS (3)
  - BRONCHITIS [None]
  - DIABETES MELLITUS NON-INSULIN-DEPENDENT [None]
  - DIABETIC HYPEROSMOLAR COMA [None]
